FAERS Safety Report 9952364 (Version 1)
Quarter: 2014Q1

REPORT INFORMATION
  Report Type: Report from Study
  Country: US (occurrence: US)
  Receive Date: 20140304
  Receipt Date: 20140304
  Transmission Date: 20141002
  Serious: No
  Sender: FDA-Public Use
  Company Number: US-ABBVIE-13P-163-1079526-00

PATIENT
  Age: 56 Year
  Sex: Female

DRUGS (4)
  1. HUMIRA [Suspect]
     Indication: CROHN^S DISEASE
     Dosage: FIRST HALF OF LOADING DOSE
     Dates: start: 20130419, end: 20130419
  2. LOMOTIL [Concomitant]
     Indication: PRODUCT USED FOR UNKNOWN INDICATION
  3. CHOLESTYRAMINE [Concomitant]
     Indication: BLOOD CHOLESTEROL
  4. DRONABINOL [Concomitant]
     Indication: NAUSEA

REACTIONS (1)
  - Injection site pain [Recovered/Resolved]
